FAERS Safety Report 4412952-4 (Version None)
Quarter: 2004Q3

REPORT INFORMATION
  Report Type: 
  Country: None (occurrence: None)
  Receive Date: 20040802
  Receipt Date: 20030926
  Transmission Date: 20050211
  Serious: No
  Sender: FDA-Public Use
  Company Number: US-GLAXOSMITHKLINE-A0427698A

PATIENT
  Age: 3 Month
  Sex: Male

DRUGS (1)
  1. ZANTAC [Suspect]
     Dosage: 2.5ML THREE TIMES PER DAY
     Route: 048
     Dates: start: 20030902, end: 20030924

REACTIONS (2)
  - OVERDOSE [None]
  - VISUAL DISTURBANCE [None]
